FAERS Safety Report 24339224 (Version 2)
Quarter: 2024Q4

REPORT INFORMATION
  Report Type: Spontaneous
  Country: FI (occurrence: FI)
  Receive Date: 20240919
  Receipt Date: 20241025
  Transmission Date: 20250114
  Serious: Yes (Other)
  Sender: PFIZER
  Company Number: FI-PFIZER INC-202400244601

PATIENT
  Age: 44 Year
  Sex: Female
  Weight: 53.5 kg

DRUGS (7)
  1. RIMEGEPANT [Suspect]
     Active Substance: RIMEGEPANT
     Indication: Prophylaxis
     Dosage: 75 MG, ALTERNATE DAY
     Route: 048
     Dates: start: 20240711, end: 20240823
  2. GABAPENTIN [Concomitant]
     Active Substance: GABAPENTIN
     Indication: Neck pain
     Dosage: 600 MG, 3X/DAY
  3. GABAPENTIN [Concomitant]
     Active Substance: GABAPENTIN
     Indication: Headache
  4. IBUPROFEN [Concomitant]
     Active Substance: IBUPROFEN
     Indication: Headache
     Dosage: 600 MG, ON 2 DAYS DURING THE 2 WEEKS BEFORE THE EVENT
  5. IBUPROFEN [Concomitant]
     Active Substance: IBUPROFEN
     Indication: Migraine
  6. ETORICOXIB [Concomitant]
     Active Substance: ETORICOXIB
     Indication: Neck pain
     Dosage: 30 MG, A FEW DAYS
  7. FLUTICASONE PROPIONATE [Concomitant]
     Active Substance: FLUTICASONE PROPIONATE
     Indication: Asthma
     Dosage: 250 MG, 1X/DAY

REACTIONS (7)
  - Diabetes mellitus [Not Recovered/Not Resolved]
  - Migraine [Recovered/Resolved with Sequelae]
  - Blood glucose fluctuation [Not Recovered/Not Resolved]
  - Feeling abnormal [Unknown]
  - Hunger [Not Recovered/Not Resolved]
  - Weight increased [Not Recovered/Not Resolved]
  - Pancreatic disorder [Unknown]

NARRATIVE: CASE EVENT DATE: 20240101
